FAERS Safety Report 21709863 (Version 1)
Quarter: 2022Q4

REPORT INFORMATION
  Report Type: Spontaneous
  Country: US (occurrence: US)
  Receive Date: 20221210
  Receipt Date: 20221210
  Transmission Date: 20230113
  Serious: Yes (Other)
  Sender: FDA-Public Use
  Company Number: US-AMGEN-USASP2022213153

PATIENT

DRUGS (2)
  1. AIMOVIG [Suspect]
     Active Substance: ERENUMAB-AOOE
     Indication: Product used for unknown indication
     Dosage: UNK
     Route: 065
     Dates: start: 20180615, end: 20180713
  2. NURTEC ODT [Concomitant]
     Active Substance: RIMEGEPANT SULFATE
     Dosage: UNK

REACTIONS (21)
  - Angioedema [Unknown]
  - Palpitations [Unknown]
  - Dyspnoea [Unknown]
  - Dizziness [Unknown]
  - Vertigo [Unknown]
  - Presyncope [Unknown]
  - Aphasia [Unknown]
  - Fatigue [Unknown]
  - Migraine [Unknown]
  - Tachycardia [Unknown]
  - Retching [Unknown]
  - Nausea [Unknown]
  - Vomiting [Unknown]
  - Diarrhoea [Unknown]
  - Pruritus [Unknown]
  - Flushing [Unknown]
  - Urticaria [Unknown]
  - Arthralgia [Unknown]
  - Paraesthesia [Unknown]
  - Anxiety [Unknown]
  - Derealisation [Unknown]

NARRATIVE: CASE EVENT DATE: 20180101
